FAERS Safety Report 15449185 (Version 1)
Quarter: 2018Q3

REPORT INFORMATION
  Report Type: Spontaneous
  Country: US (occurrence: US)
  Receive Date: 20180930
  Receipt Date: 20180930
  Transmission Date: 20181010
  Serious: Yes (Death, Life-Threatening, Hospitalization, Other)
  Sender: FDA-Public Use
  Company Number: US-GLENMARK PHARMACEUTICALS-2018GMK037442

PATIENT
  Age: 14 Year
  Sex: Male

DRUGS (2)
  1. ENTECAVIR. [Suspect]
     Active Substance: ENTECAVIR
     Indication: AUTOIMMUNE HEPATITIS
     Dosage: UNK
     Route: 065
  2. TACROLIMUS. [Suspect]
     Active Substance: TACROLIMUS
     Indication: AUTOIMMUNE HEPATITIS
     Dosage: UNK
     Route: 065

REACTIONS (17)
  - Hepatic failure [Unknown]
  - Metabolic acidosis [Unknown]
  - Sinus tachycardia [Unknown]
  - Portal fibrosis [Unknown]
  - Toxicity to various agents [Unknown]
  - Ventricular fibrillation [Recovered/Resolved]
  - Hypotension [Unknown]
  - Metabolic encephalopathy [Unknown]
  - Mycoplasma infection [Unknown]
  - Portal vein thrombosis [Recovered/Resolved]
  - Renal tubular injury [Unknown]
  - Autoimmune haemolytic anaemia [Fatal]
  - Portal vein occlusion [Unknown]
  - Multiple organ dysfunction syndrome [Unknown]
  - Histiocytosis haematophagic [Fatal]
  - Status epilepticus [Unknown]
  - Cholestasis [Unknown]
